FAERS Safety Report 9218704 (Version 3)
Quarter: 2013Q4

REPORT INFORMATION
  Report Type: Spontaneous
  Country: US (occurrence: US)
  Receive Date: 20130409
  Receipt Date: 20131018
  Transmission Date: 20140711
  Serious: Yes (Hospitalization, Other)
  Sender: FDA-Public Use
  Company Number: US-AMGEN-USASP2013023350

PATIENT
  Age: 0 Day
  Sex: Male
  Weight: 2.95 kg

DRUGS (6)
  1. ENBREL [Suspect]
     Indication: PRODUCT USED FOR UNKNOWN INDICATION
     Dosage: 50 MG, QWK
     Route: 064
     Dates: start: 20070601, end: 201009
  2. FOLIC ACID [Concomitant]
     Dosage: 400 MG, QD
     Dates: start: 201009, end: 201105
  3. PRENATAL                           /00231801/ [Concomitant]
     Dosage: 200 MG, QD
     Dates: start: 201009, end: 201105
  4. CALCIUM [Concomitant]
     Dosage: 250 MG, QD
  5. PREDNISONE [Concomitant]
     Dosage: 5 MG, QD
     Dates: start: 199909
  6. HYDROXYCHLOROQUINE [Concomitant]
     Dosage: 200 MG, 2 DAILY

REACTIONS (1)
  - Premature baby [Recovered/Resolved]
